FAERS Safety Report 13658086 (Version 1)
Quarter: 2017Q2

REPORT INFORMATION
  Report Type: Spontaneous
  Country: US (occurrence: US)
  Receive Date: 20170616
  Receipt Date: 20170616
  Transmission Date: 20170830
  Serious: Yes (Other)
  Sender: FDA-Public Use
  Company Number: US-ASTRAZENECA-2017SE61679

PATIENT
  Age: 86 Year
  Sex: Male

DRUGS (5)
  1. SENIOR VITAMINS MINERAL SUPPLEMENT [Concomitant]
     Indication: PROPHYLAXIS
     Dosage: DAILY
     Route: 065
     Dates: end: 201703
  2. PRILOSEC [Suspect]
     Active Substance: OMEPRAZOLE MAGNESIUM
     Indication: GASTROOESOPHAGEAL REFLUX DISEASE
     Dosage: OMEPRAZOLE
     Route: 048
     Dates: start: 2014
  3. PRILOSEC OTC [Suspect]
     Active Substance: OMEPRAZOLE MAGNESIUM
     Indication: GASTROOESOPHAGEAL REFLUX DISEASE
     Route: 048
  4. PRILOSEC [Suspect]
     Active Substance: OMEPRAZOLE MAGNESIUM
     Indication: GASTROOESOPHAGEAL REFLUX DISEASE
     Dosage: PRILOSEC
     Route: 048
     Dates: start: 2010
  5. SENIOR VITAMINS MINERAL SUPPLEMENT [Concomitant]
     Indication: PROPHYLAXIS
     Dosage: DAILY
     Route: 065
     Dates: end: 201706

REACTIONS (8)
  - Cholecystitis infective [Recovered/Resolved]
  - Anorectal discomfort [Not Recovered/Not Resolved]
  - Rash erythematous [Not Recovered/Not Resolved]
  - Tremor [Not Recovered/Not Resolved]
  - Posture abnormal [Not Recovered/Not Resolved]
  - Rash [Not Recovered/Not Resolved]
  - Dyskinesia [Unknown]
  - Burning sensation [Not Recovered/Not Resolved]

NARRATIVE: CASE EVENT DATE: 2016
